FAERS Safety Report 9132198 (Version 1)
Quarter: 2013Q1

REPORT INFORMATION
  Report Type: Report from Study
  Country: IT (occurrence: IT)
  Receive Date: 20130301
  Receipt Date: 20130301
  Transmission Date: 20140127
  Serious: Yes (Hospitalization)
  Sender: FDA-Public Use
  Company Number: IT-VERTEX PHARMACEUTICALS INC.-2013-000947

PATIENT
  Age: 49 Year
  Sex: Male
  Weight: 66 kg

DRUGS (3)
  1. VX-950 (TELAPREVIR) [Suspect]
     Indication: HEPATITIS C
     Dosage: TABLET, TID
     Route: 048
     Dates: start: 20121109, end: 20130131
  2. RIBAVIRIN [Suspect]
     Indication: CHRONIC HEPATITIS C
     Dosage: DOSAGE FORM: UNSPECIFIED
     Route: 048
     Dates: start: 20121214
  3. PEG INTERFERON [Suspect]
     Indication: HEPATITIS C VIRUS TEST POSITIVE
     Dosage: DOSAGE FORM: UNSPECIFIED
     Route: 058
     Dates: start: 20121109

REACTIONS (2)
  - Renal impairment [Recovered/Resolved]
  - Viral infection [Recovered/Resolved]
